FAERS Safety Report 8475128-X (Version None)
Quarter: 2012Q2

REPORT INFORMATION
  Report Type: 
  Country: None (occurrence: None)
  Receive Date: 20120628
  Receipt Date: 20120622
  Transmission Date: 20120825
  Serious: Yes (Hospitalization)
  Sender: FDA-Public Use
  Company Number: US-PFIZER INC-2012119988

PATIENT
  Sex: Female

DRUGS (3)
  1. SUTENT [Suspect]
     Indication: RENAL CANCER
     Dosage: 50 MG, 1X/DAY (PO QD X 4 WEEKS THEN 2 WEEKS OFF)
     Route: 048
     Dates: start: 20120308, end: 20120416
  2. IRON [Concomitant]
     Dosage: UNK
  3. DIOVAN [Concomitant]
     Dosage: UNK

REACTIONS (1)
  - HAEMATURIA [None]
